FAERS Safety Report 17209299 (Version 1)
Quarter: 2019Q4

REPORT INFORMATION
  Report Type: Spontaneous
  Country: US (occurrence: US)
  Receive Date: 20191227
  Receipt Date: 20191227
  Transmission Date: 20200122
  Serious: No
  Sender: FDA-Public Use
  Company Number: US-ALYVANT THERAPEUTICS, INC.-2019ALY00014

PATIENT
  Age: 76 Year
  Sex: Male
  Weight: 79.37 kg

DRUGS (6)
  1. JANUVIA [Concomitant]
     Active Substance: SITAGLIPTIN PHOSPHATE
     Dosage: 50 MG, 1X/DAY
  2. METFORMIN [Concomitant]
     Active Substance: METFORMIN HYDROCHLORIDE
     Dosage: 1000 MG, 2X/DAY
  3. UNSPECIFIED ANTIHISTAMINE [Concomitant]
     Active Substance: ANTIHISTAMINES NOS
     Dosage: UNK, 1X/DAY
  4. NOCTIVA [Suspect]
     Active Substance: DESMOPRESSIN ACETATE
     Indication: NOCTURIA
     Dosage: UNK, 1X/DAY IN THE EVENING ALTERNATING NOSTRILS WITH EACH USE
     Dates: start: 201812, end: 2019
  5. NOCTIVA [Suspect]
     Active Substance: DESMOPRESSIN ACETATE
     Dosage: UNK, EVERY OTHER NIGHT ALTERNATING NOSTRILS WITH EACH USE
     Dates: start: 2019
  6. ADVAIR HFA [Concomitant]
     Active Substance: FLUTICASONE PROPIONATE\SALMETEROL XINAFOATE

REACTIONS (1)
  - Blood sodium decreased [Recovered/Resolved]

NARRATIVE: CASE EVENT DATE: 201904
